FAERS Safety Report 4349678-1 (Version None)
Quarter: 2004Q2

REPORT INFORMATION
  Report Type: 
  Country: None (occurrence: None)
  Receive Date: 20040426
  Receipt Date: 20031020
  Transmission Date: 20050107
  Serious: Yes (Hospitalization, Other)
  Sender: FDA-Public Use
  Company Number: 2003041294

PATIENT
  Age: 19 Year
  Sex: Male

DRUGS (1)
  1. ZITHROMAX [Suspect]
     Indication: ILL-DEFINED DISORDER
     Dosage: 250 MG (DAILY), ORAL
     Route: 048
     Dates: start: 20030924

REACTIONS (1)
  - STEVENS-JOHNSON SYNDROME [None]
